FAERS Safety Report 23566636 (Version 1)
Quarter: 2024Q1

REPORT INFORMATION
  Report Type: Other
  Country: IQ (occurrence: IQ)
  Receive Date: 20240226
  Receipt Date: 20240226
  Transmission Date: 20240410
  Serious: Yes (Other)
  Sender: FDA-Public Use
  Company Number: IQ-OptiNose US, Inc-2024OPT000013

PATIENT
  Age: 64 Year
  Sex: Male

DRUGS (1)
  1. XHANCE [Suspect]
     Active Substance: FLUTICASONE PROPIONATE
     Indication: Product used for unknown indication

REACTIONS (10)
  - Tongue neoplasm malignant stage unspecified [Unknown]
  - Lip and/or oral cavity cancer [Unknown]
  - Malignant palate neoplasm [Unknown]
  - Lip neoplasm malignant stage unspecified [Unknown]
  - Precancerous condition [Unknown]
  - Angular cheilitis [Unknown]
  - Oral mucosal erythema [Unknown]
  - Candida infection [Unknown]
  - Microstomia [Unknown]
  - Dysphonia [Unknown]
